FAERS Safety Report 8556908-9 (Version None)
Quarter: 2012Q3

REPORT INFORMATION
  Report Type: 
  Country: None (occurrence: None)
  Receive Date: 20120801
  Receipt Date: 20120724
  Transmission Date: 20120928
  Serious: Yes (Hospitalization)
  Sender: FDA-Public Use
  Company Number: JP-B.I. PHARMACEUTICALS,INC./RIDGEFIELD-2012-BP-16399YA

PATIENT
  Sex: Male

DRUGS (2)
  1. TAMSULOSIN HYDROCHLORIDE [Suspect]
     Route: 048
  2. CARDIOVASCULAR MEDICATIONS [Concomitant]
     Indication: CARDIOVASCULAR DISORDER

REACTIONS (1)
  - DELIRIUM [None]
